FAERS Safety Report 8807409 (Version 3)
Quarter: 2013Q3

REPORT INFORMATION
  Report Type: Spontaneous
  Country: JP (occurrence: JP)
  Receive Date: 20120925
  Receipt Date: 20130709
  Transmission Date: 20140515
  Serious: Yes (Other)
  Sender: FDA-Public Use
  Company Number: JP-ELI_LILLY_AND_COMPANY-JP201203002450

PATIENT
  Age: 75 Year
  Sex: Female

DRUGS (3)
  1. FORTEO [Suspect]
     Indication: OSTEOPOROSIS
     Dosage: UNK
     Route: 058
     Dates: start: 201201, end: 20130524
  2. FORTEO [Suspect]
     Dosage: UNK
     Route: 058
     Dates: start: 2013, end: 201306
  3. PREDONINE [Concomitant]
     Indication: ASTHMA
     Route: 048

REACTIONS (9)
  - Pericardial effusion [Unknown]
  - Sensation of heaviness [Unknown]
  - Local swelling [Unknown]
  - Fall [Recovered/Resolved]
  - Pain [Not Recovered/Not Resolved]
  - Muscle tightness [Not Recovered/Not Resolved]
  - Pruritus [Unknown]
  - Oesophagitis [Unknown]
  - Drug ineffective [Unknown]
